FAERS Safety Report 24972120 (Version 1)
Quarter: 2025Q1

REPORT INFORMATION
  Report Type: Report from Study
  Country: US (occurrence: None)
  Receive Date: 20250214
  Receipt Date: 20250214
  Transmission Date: 20250409
  Serious: Yes (Other)
  Sender: ALEXION PHARMACEUTICALS
  Company Number: US-AstraZeneca-2009UW15480

PATIENT
  Age: 69 Year

DRUGS (2)
  1. NEXIUM [Suspect]
     Active Substance: ESOMEPRAZOLE MAGNESIUM
     Indication: Peptic ulcer
  2. CRESTOR [Suspect]
     Active Substance: ROSUVASTATIN CALCIUM
     Indication: Blood cholesterol abnormal

REACTIONS (5)
  - Muscle spasms [Unknown]
  - Chronic obstructive pulmonary disease [Unknown]
  - Influenza [Unknown]
  - Dementia [Unknown]
  - Hypoacusis [Unknown]
